FAERS Safety Report 23460776 (Version 6)
Quarter: 2025Q3

REPORT INFORMATION
  Report Type: Spontaneous
  Country: EU (occurrence: EU)
  Receive Date: 20240131
  Receipt Date: 20250821
  Transmission Date: 20251020
  Serious: Yes (Other)
  Sender: MYLAN
  Company Number: EU-TEVA-VS-3144241

PATIENT
  Age: 55 Year
  Sex: Female

DRUGS (32)
  1. ZOLEDRONIC ACID [Suspect]
     Active Substance: ZOLEDRONIC ACID
     Indication: Breast cancer metastatic
  2. ZOLEDRONIC ACID [Suspect]
     Active Substance: ZOLEDRONIC ACID
     Indication: Metastases to pelvis
  3. ZOLEDRONIC ACID [Suspect]
     Active Substance: ZOLEDRONIC ACID
     Route: 065
  4. ZOLEDRONIC ACID [Suspect]
     Active Substance: ZOLEDRONIC ACID
     Route: 065
  5. ZOLEDRONIC ACID [Suspect]
     Active Substance: ZOLEDRONIC ACID
  6. ZOLEDRONIC ACID [Suspect]
     Active Substance: ZOLEDRONIC ACID
  7. ZOLEDRONIC ACID [Suspect]
     Active Substance: ZOLEDRONIC ACID
     Route: 065
  8. ZOLEDRONIC ACID [Suspect]
     Active Substance: ZOLEDRONIC ACID
     Route: 065
  9. LETROZOLE [Interacting]
     Active Substance: LETROZOLE
     Indication: Breast cancer metastatic
  10. LETROZOLE [Interacting]
     Active Substance: LETROZOLE
     Indication: Metastases to pelvis
  11. LETROZOLE [Interacting]
     Active Substance: LETROZOLE
     Route: 065
  12. LETROZOLE [Interacting]
     Active Substance: LETROZOLE
     Route: 065
  13. LETROZOLE [Interacting]
     Active Substance: LETROZOLE
  14. LETROZOLE [Interacting]
     Active Substance: LETROZOLE
  15. LETROZOLE [Interacting]
     Active Substance: LETROZOLE
     Route: 065
  16. LETROZOLE [Interacting]
     Active Substance: LETROZOLE
     Route: 065
  17. RIBOCICLIB [Interacting]
     Active Substance: RIBOCICLIB
     Indication: Breast cancer metastatic
  18. RIBOCICLIB [Interacting]
     Active Substance: RIBOCICLIB
     Indication: Metastases to pelvis
  19. RIBOCICLIB [Interacting]
     Active Substance: RIBOCICLIB
     Route: 065
  20. RIBOCICLIB [Interacting]
     Active Substance: RIBOCICLIB
     Route: 065
  21. RIBOCICLIB [Interacting]
     Active Substance: RIBOCICLIB
     Dosage: 400 MILLIGRAM, QD
     Dates: start: 202011, end: 202011
  22. RIBOCICLIB [Interacting]
     Active Substance: RIBOCICLIB
     Dosage: 400 MILLIGRAM, QD
     Dates: start: 202011, end: 202011
  23. RIBOCICLIB [Interacting]
     Active Substance: RIBOCICLIB
     Dosage: 400 MILLIGRAM, QD
     Route: 065
     Dates: start: 202011, end: 202011
  24. RIBOCICLIB [Interacting]
     Active Substance: RIBOCICLIB
     Dosage: 400 MILLIGRAM, QD
     Route: 065
     Dates: start: 202011, end: 202011
  25. TAMOXIFEN [Concomitant]
     Active Substance: TAMOXIFEN
     Indication: Product used for unknown indication
  26. TAMOXIFEN [Concomitant]
     Active Substance: TAMOXIFEN
     Route: 065
  27. TAMOXIFEN [Concomitant]
     Active Substance: TAMOXIFEN
     Route: 065
  28. TAMOXIFEN [Concomitant]
     Active Substance: TAMOXIFEN
  29. FULVESTRANT [Concomitant]
     Active Substance: FULVESTRANT
     Indication: Product used for unknown indication
  30. FULVESTRANT [Concomitant]
     Active Substance: FULVESTRANT
     Route: 065
  31. FULVESTRANT [Concomitant]
     Active Substance: FULVESTRANT
     Route: 065
  32. FULVESTRANT [Concomitant]
     Active Substance: FULVESTRANT

REACTIONS (6)
  - Drug-induced liver injury [Unknown]
  - Hepatotoxicity [Unknown]
  - Liver injury [Unknown]
  - Vitiligo [Unknown]
  - Drug interaction [Unknown]
  - Off label use [Unknown]

NARRATIVE: CASE EVENT DATE: 20201101
